FAERS Safety Report 13353606 (Version 1)
Quarter: 2017Q1

REPORT INFORMATION
  Report Type: Other
  Country: DE (occurrence: DE)
  Receive Date: 20170321
  Receipt Date: 20170321
  Transmission Date: 20170429
  Serious: Yes (Other)
  Sender: FDA-Public Use
  Company Number: DE-MACLEODS PHARMACEUTICALS US LTD-MAC2017004464

PATIENT

DRUGS (3)
  1. BUPROPION. [Suspect]
     Active Substance: BUPROPION
     Indication: DEPRESSION
     Dosage: 150 MG/DAY (1 TRIMESTER) (0.-39.4 GESTATIONAL WEE)
     Route: 064
     Dates: start: 20151212, end: 20160914
  2. ESCITALOPRAM [Suspect]
     Active Substance: ESCITALOPRAM OXALATE
     Indication: DEPRESSION
     Dosage: 25 MG/D (1 TRIMESTER) (0.-39.4 GESTATIONAL WEEK)
     Route: 064
     Dates: start: 20151212, end: 20160914
  3. L-THYROXINE SODIUM [Concomitant]
     Active Substance: LEVOTHYROXINE SODIUM
     Indication: HYPOTHYROIDISM
     Dosage: 100 ?G/D QD (1 TRIMESTER) (0.-39.4 GESTATIONAL WEEK)
     Route: 064
     Dates: start: 20151212, end: 20160914

REACTIONS (9)
  - Agitation neonatal [Recovered/Resolved]
  - Bradycardia neonatal [Recovered/Resolved]
  - Neonatal hypoxia [Recovered/Resolved]
  - Drug withdrawal syndrome neonatal [Recovered/Resolved]
  - Foetal exposure during pregnancy [Recovered/Resolved]
  - Tremor neonatal [Recovered/Resolved]
  - Hypertension neonatal [Recovered/Resolved]
  - Small for dates baby [Recovered/Resolved]
  - Neonatal gastrointestinal disorder [Recovered/Resolved]

NARRATIVE: CASE EVENT DATE: 20160914
